FAERS Safety Report 21434762 (Version 3)
Quarter: 2022Q4

REPORT INFORMATION
  Report Type: Report from Study
  Country: GB (occurrence: GB)
  Receive Date: 20221010
  Receipt Date: 20221019
  Transmission Date: 20230113
  Serious: Yes (Other)
  Sender: FDA-Public Use
  Company Number: GB-NOVARTISPH-NVSC2022GB224902

PATIENT
  Sex: Female

DRUGS (1)
  1. OMNITROPE [Suspect]
     Active Substance: SOMATROPIN
     Indication: Product used for unknown indication
     Dosage: 0.6 MG
     Route: 058
     Dates: end: 20221002

REACTIONS (5)
  - Brain injury [Unknown]
  - Anger [Unknown]
  - Aggression [Unknown]
  - Agitation [Unknown]
  - Product availability issue [Unknown]
